FAERS Safety Report 4627778-6 (Version None)
Quarter: 2005Q2

REPORT INFORMATION
  Report Type: 
  Country: None (occurrence: None)
  Receive Date: 20050401
  Receipt Date: 20040922
  Transmission Date: 20051028
  Serious: No
  Sender: FDA-Public Use
  Company Number: 8939

PATIENT
  Age: 78 Year
  Sex: Female

DRUGS (1)
  1. ACYCLOVIR [Suspect]
     Dosage: 13 MG/KG OTH

REACTIONS (5)
  - CONFUSIONAL STATE [None]
  - ENCEPHALOPATHY [None]
  - HALLUCINATION, VISUAL [None]
  - RENAL FAILURE ACUTE [None]
  - SOMNOLENCE [None]
